FAERS Safety Report 14890986 (Version 1)
Quarter: 2018Q2

REPORT INFORMATION
  Report Type: Spontaneous
  Country: US (occurrence: US)
  Receive Date: 20180514
  Receipt Date: 20180514
  Transmission Date: 20180711
  Serious: No
  Sender: FDA-Public Use
  Company Number: US-UNITED THERAPEUTICS-UNT-2018-003109

PATIENT
  Age: 42 Year
  Sex: Male
  Weight: 159.64 kg

DRUGS (3)
  1. REMODULIN [Suspect]
     Active Substance: TREPROSTINIL
     Indication: PULMONARY ARTERIAL HYPERTENSION
     Dosage: 0.046 ?G/KG, CONTINUING
     Route: 058
     Dates: start: 20160916
  2. REVATIO [Concomitant]
     Active Substance: SILDENAFIL CITRATE
     Indication: PRODUCT USED FOR UNKNOWN INDICATION
     Route: 065
  3. LETAIRIS [Concomitant]
     Active Substance: AMBRISENTAN
     Indication: PRODUCT USED FOR UNKNOWN INDICATION
     Route: 065

REACTIONS (10)
  - Neuropathy peripheral [Unknown]
  - Device breakage [Unknown]
  - Cholelithiasis [Unknown]
  - Rash [Unknown]
  - Vomiting [Unknown]
  - Biliary colic [Unknown]
  - Nausea [Unknown]
  - Diarrhoea [Unknown]
  - Accidental exposure to product [Unknown]
  - Flushing [Unknown]

NARRATIVE: CASE EVENT DATE: 201803
